FAERS Safety Report 8952248 (Version 3)
Quarter: 2013Q4

REPORT INFORMATION
  Report Type: Spontaneous
  Country: US (occurrence: US)
  Receive Date: 20121204
  Receipt Date: 20131106
  Transmission Date: 20140711
  Serious: No
  Sender: FDA-Public Use
  Company Number: US-AMGEN-USASP2012071600

PATIENT
  Age: 58 Year
  Sex: Male
  Weight: 128.35 kg

DRUGS (5)
  1. ENBREL [Suspect]
     Indication: PSORIATIC ARTHROPATHY
     Dosage: 50 MG, QWK
     Route: 058
     Dates: start: 20080508
  2. METHOTREXATE [Suspect]
     Indication: PSORIATIC ARTHROPATHY
     Dosage: 15 MG, QWK
     Route: 048
     Dates: start: 20080117
  3. VICODIN [Concomitant]
     Indication: PAIN
     Dosage: 5 MG -325 MG, AS NECESSARY
     Route: 048
     Dates: start: 20051018
  4. NABUMETONE [Concomitant]
     Indication: PAIN
     Dosage: 750 MG, BID
     Route: 048
     Dates: start: 20080104
  5. HYDROCHLOROTHIAZIDE [Concomitant]
     Indication: HYPERTENSION
     Dosage: 25 MG, QD
     Route: 048
     Dates: start: 20061220

REACTIONS (7)
  - Furuncle [Not Recovered/Not Resolved]
  - Rash [Unknown]
  - Acne [Unknown]
  - Papule [Unknown]
  - Skin lesion [Unknown]
  - Erythema [Unknown]
  - Scar [Not Recovered/Not Resolved]
